FAERS Safety Report 6142220-4 (Version None)
Quarter: 2009Q2

REPORT INFORMATION
  Report Type: 
  Country: None (occurrence: None)
  Receive Date: 20090403
  Receipt Date: 20071130
  Transmission Date: 20091009
  Serious: Yes (Death, Hospitalization, Other)
  Sender: FDA-Public Use
  Company Number: US-ASTRAZENECA-2007UW24722

PATIENT
  Age: 500 Month
  Sex: Female
  Weight: 116.6 kg

DRUGS (33)
  1. SEROQUEL [Suspect]
     Indication: BIPOLAR DISORDER
     Dosage: 500 MG TO 700 MG
     Route: 048
     Dates: start: 20041201, end: 20050701
  2. SEROQUEL [Suspect]
     Indication: POST-TRAUMATIC STRESS DISORDER
     Dosage: 500 MG TO 700 MG
     Route: 048
     Dates: start: 20041201, end: 20050701
  3. SEROQUEL [Suspect]
     Route: 048
     Dates: start: 20050801
  4. SEROQUEL [Suspect]
     Route: 048
     Dates: start: 20050801
  5. SEROQUEL [Suspect]
     Dosage: 700 MG TO 800 MG
     Route: 048
     Dates: start: 20050901, end: 20061101
  6. SEROQUEL [Suspect]
     Dosage: 700 MG TO 800 MG
     Route: 048
     Dates: start: 20050901, end: 20061101
  7. SEROQUEL [Suspect]
     Dosage: 100 - 200 MG
     Route: 048
     Dates: start: 20031026
  8. SEROQUEL [Suspect]
     Dosage: 100 - 200 MG
     Route: 048
     Dates: start: 20031026
  9. RISPERDAL [Concomitant]
     Dates: start: 20050301, end: 20050801
  10. ABILIFY [Concomitant]
     Dosage: 5 MGTO 10 MG
     Dates: start: 20060601
  11. GEODON [Concomitant]
     Dates: start: 20060701
  12. DEPAKOTE [Concomitant]
     Dosage: 1500 MG TO 2000 MG
     Dates: start: 20050801, end: 20060501
  13. DIAZEPAM [Concomitant]
  14. LORAZEPAM [Concomitant]
  15. CLONAZEPAM [Concomitant]
  16. TOPAMAX [Concomitant]
  17. ACYCLOVIR [Concomitant]
  18. ISONIAZID [Concomitant]
  19. NIZORAL [Concomitant]
  20. GLYBURIDE [Concomitant]
  21. INDOMETHACIN [Concomitant]
  22. AMITRIPTYLINE HCL [Concomitant]
  23. DOXEPIN HCL [Concomitant]
  24. MEDROXYPROGESTERONE [Concomitant]
  25. FLUOXETINE [Concomitant]
  26. OXCARBAZEPINE [Concomitant]
  27. HYDROXYZINE [Concomitant]
  28. PROPRANOL [Concomitant]
  29. METHADONE [Concomitant]
  30. NAPROXEN [Concomitant]
  31. TRAZODONE [Concomitant]
  32. METFORMIN HCL [Concomitant]
  33. MIRTAZAPINE [Concomitant]

REACTIONS (13)
  - BACK INJURY [None]
  - BACK PAIN [None]
  - CONSTIPATION [None]
  - CUSHING'S SYNDROME [None]
  - DIABETES MELLITUS [None]
  - EAR INFECTION [None]
  - HEADACHE [None]
  - MUSCLE SPASMS [None]
  - NECK INJURY [None]
  - PAIN [None]
  - ROAD TRAFFIC ACCIDENT [None]
  - SUICIDE ATTEMPT [None]
  - WEIGHT INCREASED [None]
